FAERS Safety Report 18157986 (Version 1)
Quarter: 2020Q3

REPORT INFORMATION
  Report Type: Spontaneous
  Country: US (occurrence: US)
  Receive Date: 20200817
  Receipt Date: 20200817
  Transmission Date: 20201103
  Serious: No
  Sender: FDA-Public Use
  Company Number: US-MEDEXUS PHARMA, INC.-2019MED00209

PATIENT
  Age: 38 Year
  Sex: Female
  Weight: 58.96 kg

DRUGS (2)
  1. ZOLOFT [Concomitant]
     Active Substance: SERTRALINE HYDROCHLORIDE
  2. RASUVO [Suspect]
     Active Substance: METHOTREXATE SODIUM
     Indication: RHEUMATOID ARTHRITIS
     Dosage: 15 MG, 1X/WEEK ON WEDNESDAYS INTO TOP OF THIGH
     Dates: start: 201904

REACTIONS (5)
  - Inappropriate schedule of product administration [Unknown]
  - Pain [Unknown]
  - Therapeutic product effect incomplete [Unknown]
  - Rheumatoid arthritis [Unknown]
  - Device failure [Not Recovered/Not Resolved]

NARRATIVE: CASE EVENT DATE: 2019
